APPROVED DRUG PRODUCT: ABACAVIR SULFATE, LAMIVUDINE AND ZIDOVUDINE
Active Ingredient: ABACAVIR SULFATE; LAMIVUDINE; ZIDOVUDINE
Strength: EQ 300MG BASE;150MG;300MG
Dosage Form/Route: TABLET;ORAL
Application: A202912 | Product #001
Applicant: LUPIN LTD
Approved: Dec 5, 2013 | RLD: No | RS: No | Type: DISCN